FAERS Safety Report 8184618-9 (Version None)
Quarter: 2012Q1

REPORT INFORMATION
  Report Type: 
  Country: None (occurrence: None)
  Receive Date: 20120305
  Receipt Date: 20120228
  Transmission Date: 20120608
  Serious: Yes (Other)
  Sender: FDA-Public Use
  Company Number: IE-PFIZER INC-2012054775

PATIENT
  Sex: Male

DRUGS (1)
  1. ATORVASTATIN [Suspect]
     Dosage: UNK

REACTIONS (3)
  - ARTHRITIS [None]
  - CHONDROPATHY [None]
  - PLANTAR FASCIITIS [None]
